FAERS Safety Report 4960532-4 (Version None)
Quarter: 2006Q1

REPORT INFORMATION
  Report Type: 
  Country: None (occurrence: None)
  Receive Date: 20060329
  Receipt Date: 20060322
  Transmission Date: 20060701
  Serious: Yes (Hospitalization)
  Sender: FDA-Public Use
  Company Number: BR-2006-006476

PATIENT
  Age: 26 Year
  Sex: Female

DRUGS (2)
  1. YASMIN [Suspect]
     Indication: ORAL CONTRACEPTION
     Dosage: 1 TAB(S), UNK, ORAL
     Route: 048
     Dates: start: 20050810, end: 20050901
  2. YASMIN [Suspect]
     Indication: ORAL CONTRACEPTION
     Dosage: 1 TAB(S), UNK, ORAL
     Route: 048
     Dates: start: 20060301

REACTIONS (4)
  - BREAST PAIN [None]
  - COLITIS [None]
  - GENITAL HAEMORRHAGE [None]
  - NIPPLE PAIN [None]
